FAERS Safety Report 7546120-4 (Version None)
Quarter: 2011Q2

REPORT INFORMATION
  Report Type: 
  Country: None (occurrence: None)
  Receive Date: 20110524
  Receipt Date: 20110304
  Transmission Date: 20111010
  Serious: No
  Sender: FDA-Public Use
  Company Number: 028815

PATIENT
  Sex: Female
  Weight: 49.9 kg

DRUGS (1)
  1. CIMZIA [Suspect]
     Indication: CROHN'S DISEASE
     Dosage: (400 MG 1X/4 WEEKS, VIAL # 1 EXPIRY DATE: FEB/2013 AND VIAL # 2 EXPIRY DATE: FEB/2011 SUBCUTANEOUS)
     Route: 058
     Dates: start: 20101101

REACTIONS (1)
  - PRODUCTIVE COUGH [None]
